FAERS Safety Report 17417128 (Version 1)
Quarter: 2020Q1

REPORT INFORMATION
  Report Type: Spontaneous
  Country: CA (occurrence: CA)
  Receive Date: 20200214
  Receipt Date: 20200214
  Transmission Date: 20200409
  Serious: Yes (Hospitalization)
  Sender: FDA-Public Use
  Company Number: CA-ROCHE-2545824

PATIENT
  Age: 52 Year
  Sex: Female

DRUGS (26)
  1. CLONAZEPAM. [Suspect]
     Active Substance: CLONAZEPAM
     Indication: HYPOMANIA
     Route: 048
  2. KALETRA [Concomitant]
     Active Substance: LOPINAVIR\RITONAVIR
  3. LITHIUM. [Concomitant]
     Active Substance: LITHIUM
  4. T-20 [Concomitant]
     Active Substance: ENFUVIRTIDE
  5. OLANZAPINE. [Suspect]
     Active Substance: OLANZAPINE
     Route: 048
  6. ACETAMINOPHEN. [Suspect]
     Active Substance: ACETAMINOPHEN
     Indication: PAIN IN EXTREMITY
     Route: 048
  7. IMODIUM [Concomitant]
     Active Substance: LOPERAMIDE HYDROCHLORIDE
  8. OLANZAPINE. [Suspect]
     Active Substance: OLANZAPINE
     Indication: PSYCHOTIC DISORDER
     Route: 048
  9. CALCIUM CARBONATE. [Concomitant]
     Active Substance: CALCIUM CARBONATE
  10. QUETIAPINE. [Suspect]
     Active Substance: QUETIAPINE
     Indication: PSYCHOTIC DISORDER
     Route: 048
  11. BISACODYL. [Concomitant]
     Active Substance: BISACODYL
  12. NYSTATIN. [Concomitant]
     Active Substance: NYSTATIN
  13. DIAZEPAM. [Suspect]
     Active Substance: DIAZEPAM
     Route: 048
  14. TRAZODONE [Suspect]
     Active Substance: TRAZODONE HYDROCHLORIDE
     Indication: DEPRESSION
     Route: 048
  15. SERTRALINE [Concomitant]
     Active Substance: SERTRALINE HYDROCHLORIDE
  16. BENADRYL [Concomitant]
     Active Substance: DIPHENHYDRAMINE HYDROCHLORIDE
  17. DIAZEPAM. [Suspect]
     Active Substance: DIAZEPAM
     Indication: DEPRESSION
     Route: 048
  18. DIAZEPAM. [Suspect]
     Active Substance: DIAZEPAM
     Route: 048
  19. APTIVUS [Suspect]
     Active Substance: TIPRANAVIR
     Indication: HIV INFECTION
     Route: 048
  20. TEGRETOL [Suspect]
     Active Substance: CARBAMAZEPINE
     Indication: HYPOMANIA
     Route: 048
  21. 3TC [Concomitant]
     Active Substance: LAMIVUDINE
  22. PROCYCLIDINE HCL [Suspect]
     Active Substance: PROCYCLIDINE HYDROCHLORIDE
     Indication: PROPHYLAXIS
     Route: 048
  23. PROCYCLIDINE HCL [Suspect]
     Active Substance: PROCYCLIDINE HYDROCHLORIDE
     Indication: MUSCULOSKELETAL STIFFNESS
  24. RISPERIDONE. [Suspect]
     Active Substance: RISPERIDONE
     Indication: PSYCHOTIC DISORDER
     Route: 048
  25. CHLORAL HYDRATE [Concomitant]
     Active Substance: CHLORAL HYDRATE
  26. LACTULOSE. [Concomitant]
     Active Substance: LACTULOSE

REACTIONS (12)
  - Condition aggravated [Unknown]
  - Hepatic enzyme increased [Unknown]
  - Jaundice cholestatic [Unknown]
  - Vomiting [Unknown]
  - Nausea [Unknown]
  - Schizophrenia [Unknown]
  - Psychotic disorder [Unknown]
  - Blood bilirubin increased [Unknown]
  - Hepatotoxicity [Unknown]
  - Pneumonia [Unknown]
  - Hypomania [Unknown]
  - Cholelithiasis [Unknown]
